FAERS Safety Report 9907935 (Version 1)
Quarter: 2014Q1

REPORT INFORMATION
  Report Type: Spontaneous
  Country: US (occurrence: US)
  Receive Date: 20140219
  Receipt Date: 20140219
  Transmission Date: 20141002
  Serious: Yes (Hospitalization)
  Sender: FDA-Public Use
  Company Number: US-AMGEN-USASP2014011247

PATIENT
  Age: 70 Year
  Sex: Female

DRUGS (3)
  1. ENBREL [Suspect]
     Indication: PSORIATIC ARTHROPATHY
     Dosage: 25 MG, 2 TIMES/WK
     Route: 065
     Dates: start: 20030801, end: 2012
  2. PREDNISONE [Suspect]
     Indication: PRODUCT USED FOR UNKNOWN INDICATION
     Dosage: UNK
     Route: 065
  3. LYRICA [Concomitant]
     Dosage: 75 MG, QD

REACTIONS (8)
  - Panic attack [Recovered/Resolved]
  - Dyspnoea [Recovered/Resolved]
  - Effusion [Recovered/Resolved]
  - Atrophy [Not Recovered/Not Resolved]
  - Swelling [Recovered/Resolved]
  - Pain [Not Recovered/Not Resolved]
  - Musculoskeletal stiffness [Not Recovered/Not Resolved]
  - Weight increased [Not Recovered/Not Resolved]
